FAERS Safety Report 7305842-0 (Version None)
Quarter: 2011Q1

REPORT INFORMATION
  Report Type: 
  Country: None (occurrence: None)
  Receive Date: 20110222
  Receipt Date: 20110209
  Transmission Date: 20110831
  Serious: Yes (Other)
  Sender: FDA-Public Use
  Company Number: JP-ROCHE-760160

PATIENT
  Age: 13 Year
  Sex: Male

DRUGS (4)
  1. TACROLIMUS [Concomitant]
     Route: 065
  2. METHYLPREDNISOLONE [Concomitant]
     Route: 065
  3. BASILIXIMAB [Concomitant]
     Route: 065
  4. CELLCEPT [Suspect]
     Indication: PROPHYLAXIS AGAINST TRANSPLANT REJECTION
     Route: 048

REACTIONS (2)
  - HYDRONEPHROSIS [None]
  - URETERIC STENOSIS [None]
